FAERS Safety Report 17504030 (Version 2)
Quarter: 2021Q1

REPORT INFORMATION
  Report Type: Spontaneous
  Country: US (occurrence: US)
  Receive Date: 20200305
  Receipt Date: 20210226
  Transmission Date: 20210419
  Serious: No
  Sender: FDA-Public Use
  Company Number: US-ROCHE-2359810

PATIENT
  Sex: Female

DRUGS (18)
  1. SKELAXIN [Concomitant]
     Active Substance: METAXALONE
  2. METHYLPREDNISOLONE. [Concomitant]
     Active Substance: METHYLPREDNISOLONE
  3. TESSALON [Concomitant]
     Active Substance: BENZONATATE
  4. CLARITHROMYCIN. [Concomitant]
     Active Substance: CLARITHROMYCIN
  5. AMOXICILLINE [Concomitant]
     Active Substance: AMOXICILLIN
  6. GENERESS FE [Concomitant]
     Active Substance: ETHINYL ESTRADIOL\NORETHINDRONE
  7. IBUPROFEN. [Concomitant]
     Active Substance: IBUPROFEN
  8. TAMIFLU [Concomitant]
     Active Substance: OSELTAMIVIR PHOSPHATE
  9. NABUMETONE. [Concomitant]
     Active Substance: NABUMETONE
     Route: 061
  10. DULERA [Concomitant]
     Active Substance: FORMOTEROL FUMARATE DIHYDRATE\MOMETASONE FUROATE
  11. PREDNISONE. [Concomitant]
     Active Substance: PREDNISONE
  12. NAPROXEN. [Concomitant]
     Active Substance: NAPROXEN
     Route: 061
  13. METOPROLOL. [Concomitant]
     Active Substance: METOPROLOL
  14. MONTELUKAST SODIUM. [Concomitant]
     Active Substance: MONTELUKAST SODIUM
  15. CLAVULANATE POTASSIUM [Concomitant]
     Active Substance: CLAVULANATE POTASSIUM
  16. XOLAIR [Suspect]
     Active Substance: OMALIZUMAB
     Indication: ASTHMA
     Route: 058
  17. AZITHROMYCIN ANHYDROUS. [Concomitant]
     Active Substance: AZITHROMYCIN ANHYDROUS
  18. SUCCINATE SODIUM [Concomitant]

REACTIONS (1)
  - Illness [Not Recovered/Not Resolved]
